FAERS Safety Report 11169472 (Version 1)
Quarter: 2015Q2

REPORT INFORMATION
  Report Type: Spontaneous
  Country: FR (occurrence: FR)
  Receive Date: 20150605
  Receipt Date: 20150605
  Transmission Date: 20150821
  Serious: Yes (Other)
  Sender: FDA-Public Use
  Company Number: FR-ASTRAZENECA-2015SE54464

PATIENT
  Age: 891 Month
  Sex: Female

DRUGS (4)
  1. XGEVA [Concomitant]
     Active Substance: DENOSUMAB
  2. STEROGYL [Concomitant]
     Active Substance: ERGOCALCIFEROL
  3. FASLODEX [Suspect]
     Active Substance: FULVESTRANT
     Indication: BREAST CANCER FEMALE
     Dosage: 250 MG TWO INJECTIONS THE FIRST DAY AND THEN 15 DAYS LATER AND THEN EVERY MONTH
     Route: 030
     Dates: start: 201503
  4. CALCIUM [Concomitant]
     Active Substance: CALCIUM

REACTIONS (3)
  - VIIth nerve paralysis [Not Recovered/Not Resolved]
  - Lymphadenopathy [Not Recovered/Not Resolved]
  - Drug dispensing error [Not Recovered/Not Resolved]

NARRATIVE: CASE EVENT DATE: 201503
